FAERS Safety Report 8260933-5 (Version None)
Quarter: 2012Q2

REPORT INFORMATION
  Report Type: 
  Country: None (occurrence: None)
  Receive Date: 20120405
  Receipt Date: 20120321
  Transmission Date: 20120825
  Serious: No
  Sender: FDA-Public Use
  Company Number: US-JNJFOC-20120310900

PATIENT
  Sex: Female
  Weight: 56.7 kg

DRUGS (6)
  1. NUCYNTA ER [Suspect]
     Indication: BACK PAIN
     Route: 048
     Dates: end: 20120301
  2. DURAGESIC-100 [Suspect]
     Indication: PRODUCT USED FOR UNKNOWN INDICATION
     Route: 062
  3. DURAGESIC-100 [Suspect]
     Route: 062
  4. NUCYNTA ER [Suspect]
     Route: 048
     Dates: start: 20120201
  5. ZANAFLEX [Concomitant]
     Indication: MUSCLE SPASMS
     Route: 048
     Dates: start: 20120101
  6. NUCYNTA ER [Suspect]
     Indication: BACK PAIN
     Dosage: TWICE DAILY
     Route: 048
     Dates: start: 20120101, end: 20120201

REACTIONS (3)
  - THERAPEUTIC RESPONSE DECREASED [None]
  - DRUG PRESCRIBING ERROR [None]
  - BODY HEIGHT DECREASED [None]
